FAERS Safety Report 6491651-1 (Version None)
Quarter: 2009Q4

REPORT INFORMATION
  Report Type: 
  Country: None (occurrence: None)
  Receive Date: 20091207
  Receipt Date: 20091118
  Transmission Date: 20100525
  Serious: Yes (Other)
  Sender: FDA-Public Use
  Company Number: 20090551

PATIENT
  Sex: Female

DRUGS (1)
  1. VENOFER        (IRON SUCROSE INJECTION-VIFOR) [Suspect]

REACTIONS (2)
  - BURNING SENSATION [None]
  - HYPERVENTILATION [None]
